FAERS Safety Report 7477508-8 (Version None)
Quarter: 2011Q2

REPORT INFORMATION
  Report Type: 
  Country: None (occurrence: None)
  Receive Date: 20110510
  Receipt Date: 20110510
  Transmission Date: 20111010
  Serious: Yes (Other)
  Sender: FDA-Public Use
  Company Number: None

PATIENT
  Age: 23 Year
  Sex: Male
  Weight: 55.3388 kg

DRUGS (1)
  1. MEFLOQUINE HYDROCHLORIDE [Suspect]
     Indication: MALARIA PROPHYLAXIS
     Dosage: 250 MG WEEKLY PO
     Route: 048
     Dates: start: 20101001, end: 20110204

REACTIONS (17)
  - HEADACHE [None]
  - NAUSEA [None]
  - LETHARGY [None]
  - DIZZINESS [None]
  - PRURITUS [None]
  - POLLAKIURIA [None]
  - DEPRESSION [None]
  - STOMATITIS [None]
  - MALAISE [None]
  - IMPETIGO [None]
  - DIARRHOEA [None]
  - RASH [None]
  - BACTERIAL INFECTION [None]
  - MOOD SWINGS [None]
  - COUGH [None]
  - INSOMNIA [None]
  - FEELING JITTERY [None]
